FAERS Safety Report 9621837 (Version 2)
Quarter: 2013Q4

REPORT INFORMATION
  Report Type: Spontaneous
  Country: US (occurrence: US)
  Receive Date: 20131015
  Receipt Date: 20131015
  Transmission Date: 20140711
  Serious: No
  Sender: FDA-Public Use
  Company Number: US-PURDUE-USA-2012-0084433

PATIENT
  Age: 60 Year
  Sex: Male

DRUGS (2)
  1. BUTRANS [Suspect]
     Indication: PAIN
     Dosage: 5 MCG/HR, UNK
     Route: 062
     Dates: start: 20120306, end: 20120320
  2. ELAVIL /00002202/ [Suspect]
     Indication: PAIN
     Dosage: 25 MG, UNK
     Dates: start: 20120306, end: 20120319

REACTIONS (5)
  - Unevaluable event [Unknown]
  - Somnolence [Unknown]
  - Dizziness [Recovered/Resolved]
  - Nausea [Recovered/Resolved]
  - Decreased appetite [Recovered/Resolved]
